FAERS Safety Report 7612001-0 (Version None)
Quarter: 2011Q3

REPORT INFORMATION
  Report Type: 
  Country: None (occurrence: None)
  Receive Date: 20110715
  Receipt Date: 20110711
  Transmission Date: 20111222
  Serious: Yes (Life-Threatening, Hospitalization, Other)
  Sender: FDA-Public Use
  Company Number: CN-ASTRAZENECA-2011SE41023

PATIENT
  Age: 60 Year
  Sex: Male

DRUGS (2)
  1. CRESTOR [Suspect]
     Route: 048
  2. TCMS [Concomitant]
     Indication: CARDIOVASCULAR DISORDER

REACTIONS (2)
  - RHABDOMYOLYSIS [None]
  - MULTI-ORGAN FAILURE [None]
